FAERS Safety Report 10305853 (Version 3)
Quarter: 2014Q3

REPORT INFORMATION
  Report Type: Spontaneous
  Country: JP (occurrence: JP)
  Receive Date: 20140715
  Receipt Date: 20140902
  Transmission Date: 20150326
  Serious: Yes (Other)
  Sender: FDA-Public Use
  Company Number: JP-PFIZER INC-2014193254

PATIENT
  Age: 60 Year
  Sex: Female

DRUGS (2)
  1. DESMOPRESSIN [Concomitant]
     Active Substance: DESMOPRESSIN
     Indication: HORMONE REPLACEMENT THERAPY
  2. CORTRIL [Suspect]
     Active Substance: HYDROCORTISONE
     Indication: HORMONE REPLACEMENT THERAPY
     Dosage: 10 MG
     Route: 048
     Dates: start: 20140422, end: 20140625

REACTIONS (2)
  - Mammary duct ectasia [Unknown]
  - Breast discharge [Unknown]

NARRATIVE: CASE EVENT DATE: 20140610
